FAERS Safety Report 16307511 (Version 2)
Quarter: 2019Q3

REPORT INFORMATION
  Report Type: Spontaneous
  Country: US (occurrence: US)
  Receive Date: 20190514
  Receipt Date: 20190701
  Transmission Date: 20191004
  Serious: Yes (Hospitalization, Other)
  Sender: FDA-Public Use
  Company Number: US-AMGEN-USASP2019073901

PATIENT
  Age: 73 Year
  Sex: Female

DRUGS (1)
  1. REPATHA [Suspect]
     Active Substance: EVOLOCUMAB
     Indication: BLOOD CHOLESTEROL INCREASED
     Dosage: 140 MILLIGRAM, Q2WK
     Route: 065
     Dates: start: 2017

REACTIONS (5)
  - Wrong technique in device usage process [Unknown]
  - Device malfunction [Unknown]
  - Incorrect dose administered by device [Unknown]
  - Colon operation [Unknown]
  - Limb operation [Unknown]

NARRATIVE: CASE EVENT DATE: 201811
